FAERS Safety Report 17563213 (Version 2)
Quarter: 2020Q2

REPORT INFORMATION
  Report Type: Spontaneous
  Country: US (occurrence: US)
  Receive Date: 20200319
  Receipt Date: 20200402
  Transmission Date: 20200713
  Serious: No
  Sender: FDA-Public Use
  Company Number: US-TEVA-2020-US-1201226

PATIENT
  Sex: Male

DRUGS (1)
  1. FLUOCINONIDE TEVA [Suspect]
     Active Substance: FLUOCINONIDE
     Indication: DERMATITIS
     Route: 065
     Dates: start: 20200309

REACTIONS (3)
  - Dermal absorption impaired [Unknown]
  - Pruritus [Unknown]
  - Drug ineffective [Unknown]

NARRATIVE: CASE EVENT DATE: 20200309
